FAERS Safety Report 8197107-2 (Version None)
Quarter: 2012Q1

REPORT INFORMATION
  Report Type: 
  Country: None (occurrence: None)
  Receive Date: 20120307
  Receipt Date: 20120223
  Transmission Date: 20120608
  Serious: Yes (Hospitalization, Other)
  Sender: FDA-Public Use
  Company Number: 2012P1008023

PATIENT
  Age: 60 Year
  Sex: Female

DRUGS (4)
  1. FENTANYL-100 [Suspect]
     Indication: BREAKTHROUGH PAIN
     Dosage: 1 PATCH;QOD;TDER
     Route: 062
     Dates: start: 20110101
  2. FENTANYL-100 [Suspect]
     Indication: BONE PAIN
     Dosage: 1 PATCH;QOD;TDER
     Route: 062
     Dates: start: 20110101
  3. ENDOCET 10/650 [Concomitant]
  4. XANAX [Concomitant]

REACTIONS (10)
  - ANXIETY [None]
  - BURNING SENSATION [None]
  - HEMIPLEGIA [None]
  - DIABETES MELLITUS [None]
  - PRODUCT SUBSTITUTION ISSUE [None]
  - AGGRESSION [None]
  - ARTHROPATHY [None]
  - MUSCLE SPASMS [None]
  - THROMBOTIC STROKE [None]
  - MEMORY IMPAIRMENT [None]
